FAERS Safety Report 25238639 (Version 1)
Quarter: 2025Q2

REPORT INFORMATION
  Report Type: Spontaneous
  Country: US (occurrence: US)
  Receive Date: 20250425
  Receipt Date: 20250425
  Transmission Date: 20250717
  Serious: No
  Sender: JOHNSON AND JOHNSON
  Company Number: US-JNJFOC-20250421403

PATIENT
  Sex: Female

DRUGS (5)
  1. SIMPONI ARIA [Suspect]
     Active Substance: GOLIMUMAB
     Indication: Rheumatoid arthritis
     Dosage: LAST INFUSION WAS ON 11-MAR-2025
     Route: 041
     Dates: start: 2024
  2. SIMPONI ARIA [Suspect]
     Active Substance: GOLIMUMAB
     Indication: Osteoarthritis
  3. HYDROXYCHLOROQUINE [Concomitant]
     Active Substance: HYDROXYCHLOROQUINE
  4. SPIRONOLACTONE [Concomitant]
     Active Substance: SPIRONOLACTONE
  5. VITAMINS NOS [Concomitant]
     Active Substance: VITAMINS

REACTIONS (4)
  - Supraventricular tachycardia [Unknown]
  - Fatigue [Unknown]
  - Hypertension [Unknown]
  - Gait disturbance [Unknown]
